FAERS Safety Report 24832496 (Version 1)
Quarter: 2025Q1

REPORT INFORMATION
  Report Type: Other
  Country: CN (occurrence: CN)
  Receive Date: 20250110
  Receipt Date: 20250110
  Transmission Date: 20250408
  Serious: Yes (Hospitalization)
  Sender: B BRAUN
  Company Number: CN-B.Braun Medical Inc.-2168829

PATIENT
  Age: 67 Year
  Sex: Male

DRUGS (6)
  1. MANNITOL [Suspect]
     Active Substance: MANNITOL
     Indication: Reduction of increased intracranial pressure
  2. UNSPECIFIED INGREDIENT [Suspect]
     Active Substance: UNSPECIFIED INGREDIENT
  3. AFATINIB [Concomitant]
     Active Substance: AFATINIB
  4. Polyethylene glycolated ?recombinant human granulocyte colony-stimulat [Concomitant]
  5. Docetaxel chemotherapy [Concomitant]
  6. Paclitaxel + cisplatin [Concomitant]

REACTIONS (1)
  - Drug ineffective [Unknown]
